FAERS Safety Report 5771356-2 (Version None)
Quarter: 2008Q2

REPORT INFORMATION
  Report Type: 
  Country: None (occurrence: None)
  Receive Date: 20080613
  Receipt Date: 20080605
  Transmission Date: 20081010
  Serious: Yes (Hospitalization)
  Sender: FDA-Public Use
  Company Number: DE-BAYER-200820141GPV

PATIENT
  Sex: Female

DRUGS (1)
  1. BETAFERON [Suspect]
     Indication: DRUG USE FOR UNKNOWN INDICATION

REACTIONS (6)
  - EYE SWELLING [None]
  - HYPERSENSITIVITY [None]
  - MYALGIA [None]
  - OEDEMA PERIPHERAL [None]
  - RASH MACULAR [None]
  - SLEEP DISORDER [None]
